FAERS Safety Report 5390784-0 (Version None)
Quarter: 2007Q3

REPORT INFORMATION
  Report Type: 
  Country: None (occurrence: None)
  Receive Date: 20070716
  Receipt Date: 20070629
  Transmission Date: 20080115
  Serious: Yes (Hospitalization)
  Sender: FDA-Public Use
  Company Number: 8025242

PATIENT
  Sex: Female

DRUGS (2)
  1. KEPPRA [Suspect]
  2. CHEMOTHERAPY [Concomitant]

REACTIONS (1)
  - ADVERSE DRUG REACTION [None]
